FAERS Safety Report 17197414 (Version 1)
Quarter: 2019Q4

REPORT INFORMATION
  Report Type: Spontaneous
  Country: JP (occurrence: JP)
  Receive Date: 20191224
  Receipt Date: 20191224
  Transmission Date: 20200122
  Serious: Yes (Hospitalization)
  Sender: FDA-Public Use
  Company Number: JP-TEVA-2019-JP-1159162

PATIENT
  Age: 42 Year
  Sex: Female

DRUGS (3)
  1. LOXOPROFEN [Suspect]
     Active Substance: LOXOPROFEN
     Indication: PHARYNGITIS BACTERIAL
     Route: 065
  2. TRANEXAMIC ACID. [Suspect]
     Active Substance: TRANEXAMIC ACID
     Indication: PHARYNGITIS BACTERIAL
     Route: 065
  3. AMOXICILLIN. [Concomitant]
     Active Substance: AMOXICILLIN
     Indication: PHARYNGITIS BACTERIAL
     Route: 065

REACTIONS (2)
  - Meningitis aseptic [Recovered/Resolved]
  - Fixed eruption [Recovering/Resolving]
